FAERS Safety Report 6810042-4 (Version None)
Quarter: 2010Q2

REPORT INFORMATION
  Report Type: 
  Country: None (occurrence: None)
  Receive Date: 20100630
  Receipt Date: 20100625
  Transmission Date: 20101027
  Serious: Yes (Other)
  Sender: FDA-Public Use
  Company Number: US-ROCHE-689582

PATIENT
  Sex: Female

DRUGS (2)
  1. MYCOPHENOLATE MOFETIL [Suspect]
     Indication: DRUG USE FOR UNKNOWN INDICATION
     Route: 065
     Dates: start: 20091008
  2. MYCOPHENOLATE MOFETIL [Suspect]
     Dosage: DOSE INCREASED
     Route: 065

REACTIONS (6)
  - CELLULITIS [None]
  - GANGRENE [None]
  - MYOCARDIAL INFARCTION [None]
  - NECROSIS [None]
  - PERIPHERAL ARTERIAL OCCLUSIVE DISEASE [None]
  - SEPSIS [None]
